FAERS Safety Report 7493895-9 (Version None)
Quarter: 2011Q2

REPORT INFORMATION
  Report Type: 
  Country: None (occurrence: None)
  Receive Date: 20110519
  Receipt Date: 20110519
  Transmission Date: 20111010
  Serious: Yes (Other)
  Sender: FDA-Public Use
  Company Number: None

PATIENT
  Sex: Male
  Weight: 90.7194 kg

DRUGS (2)
  1. VENLAFAXINE HYDROCHLORIDE [Suspect]
     Indication: ANXIETY
     Dosage: 75MG
     Dates: start: 20101001, end: 20110201
  2. VENLAFAXINE HYDROCHLORIDE [Suspect]
     Indication: DEPRESSION
     Dosage: 75MG
     Dates: start: 20101001, end: 20110201

REACTIONS (3)
  - PRODUCT SUBSTITUTION ISSUE [None]
  - SEXUAL DYSFUNCTION [None]
  - WEIGHT INCREASED [None]
